FAERS Safety Report 5837581-7 (Version None)
Quarter: 2008Q3

REPORT INFORMATION
  Report Type: 
  Country: None (occurrence: None)
  Receive Date: 20080807
  Receipt Date: 20080729
  Transmission Date: 20090109
  Serious: Yes (Death)
  Sender: FDA-Public Use
  Company Number: DE-AMGEN-UK298259

PATIENT
  Age: 67 Year
  Sex: Male

DRUGS (5)
  1. KINERET [Suspect]
     Indication: RHEUMATOID ARTHRITIS
     Dates: start: 20030301, end: 20031001
  2. REMICADE [Concomitant]
     Dates: start: 20031001, end: 20031001
  3. REMICADE [Concomitant]
     Dates: start: 20040501, end: 20040501
  4. METHOTREXATE [Concomitant]
     Dates: start: 20030301
  5. ETANERCEPT [Concomitant]
     Dates: start: 20040701, end: 20041201

REACTIONS (1)
  - SUDDEN DEATH [None]
